FAERS Safety Report 9407781 (Version 1)
Quarter: 2013Q3

REPORT INFORMATION
  Report Type: Spontaneous
  Country: ES (occurrence: ES)
  Receive Date: 20130718
  Receipt Date: 20130718
  Transmission Date: 20140515
  Serious: Yes (Other)
  Sender: FDA-Public Use
  Company Number: ES-BAXTER-2013BAX026906

PATIENT
  Age: 8 Month
  Sex: Male

DRUGS (1)
  1. ADVATE [Suspect]
     Indication: PROPHYLAXIS
     Route: 042

REACTIONS (2)
  - Factor VIII inhibition [Unknown]
  - Haemorrhage intracranial [Unknown]
